FAERS Safety Report 21609355 (Version 1)
Quarter: 2022Q4

REPORT INFORMATION
  Report Type: Spontaneous
  Country: CA (occurrence: CA)
  Receive Date: 20221117
  Receipt Date: 20221117
  Transmission Date: 20230113
  Serious: Yes (Life-Threatening, Hospitalization)
  Sender: FDA-Public Use
  Company Number: CA-PFIZER INC-202201306483

PATIENT
  Age: 1 Year
  Sex: Female

DRUGS (12)
  1. CYTARABINE [Suspect]
     Active Substance: CYTARABINE
     Dosage: 330 MG, 2 EVERY 1 DAYS
     Route: 042
  2. ETOPOSIDE [Suspect]
     Active Substance: ETOPOSIDE
     Indication: Acute myeloid leukaemia
     Dosage: 50 MG, 1 EVERY 1 DAYS
     Route: 042
  3. CASPOFUNGIN [Concomitant]
     Active Substance: CASPOFUNGIN
  4. EMEND [Concomitant]
     Active Substance: APREPITANT
  5. HYDROCORTISONE [Concomitant]
     Active Substance: HYDROCORTISONE
  6. LEVOFLOXACIN [Concomitant]
     Active Substance: LEVOFLOXACIN
  7. MELATONIN [Concomitant]
     Active Substance: MELATONIN
  8. METHOTREXATE [Concomitant]
     Active Substance: METHOTREXATE
  9. OMEPRAZOLE [Concomitant]
     Active Substance: OMEPRAZOLE
  10. ONDANSETRON [Concomitant]
     Active Substance: ONDANSETRON
  11. PREDNISOLONE [Concomitant]
     Active Substance: PREDNISOLONE
     Dosage: OPHTHALMIC
  12. SEPTRA [Concomitant]
     Active Substance: SULFAMETHOXAZOLE\TRIMETHOPRIM
     Dosage: PEDIATRIC SUSPENSION

REACTIONS (2)
  - Febrile neutropenia [Recovering/Resolving]
  - Mucosal inflammation [Recovering/Resolving]
